FAERS Safety Report 6735678-0 (Version None)
Quarter: 2010Q2

REPORT INFORMATION
  Report Type: 
  Country: None (occurrence: None)
  Receive Date: 20100521
  Receipt Date: 20100512
  Transmission Date: 20101027
  Serious: Yes (Other)
  Sender: FDA-Public Use
  Company Number: JP-BAYER-201012285BYL

PATIENT
  Age: 86 Year
  Sex: Female

DRUGS (3)
  1. ASPIRIN [Suspect]
     Indication: ANTICOAGULANT THERAPY
     Dosage: TOTAL DAILY DOSE: 100 MG  UNIT DOSE: 100 MG
     Route: 048
     Dates: start: 20071024
  2. CLOPIDOGREL [Suspect]
     Indication: ANTICOAGULANT THERAPY
     Route: 048
     Dates: start: 20071024, end: 20090608
  3. CLOPIDOGREL [Suspect]
     Route: 048
     Dates: start: 20090609

REACTIONS (1)
  - RECTAL ULCER HAEMORRHAGE [None]
